FAERS Safety Report 9096661 (Version 1)
Quarter: 2013Q1

REPORT INFORMATION
  Report Type: Spontaneous
  Country: US (occurrence: None)
  Receive Date: 20130124
  Receipt Date: 20130124
  Transmission Date: 20140127
  Serious: Yes (Hospitalization)
  Sender: FDA-Public Use
  Company Number: 1301-084

PATIENT
  Sex: Male
  Weight: 70.31 kg

DRUGS (2)
  1. EYLEA (AFLIBERCEPT) (INJECTION) (AFLIBERCEPT, AFLIBERCEPT) [Suspect]
     Indication: MACULAR DEGENERATION
  2. MEDICATION FOR HIGH BLOOD PRESSURE (ANTIHYPERTENSIVES) [Concomitant]

REACTIONS (2)
  - Heart rate decreased [None]
  - Weight decreased [None]
